FAERS Safety Report 14071853 (Version 1)
Quarter: 2017Q4

REPORT INFORMATION
  Report Type: Spontaneous
  Country: US (occurrence: US)
  Receive Date: 20171010
  Receipt Date: 20171010
  Transmission Date: 20180321
  Serious: No
  Sender: FDA-Public Use
  Company Number: None

PATIENT
  Age: 33 Year
  Sex: Female
  Weight: 60.75 kg

DRUGS (3)
  1. PRENATAL VITAMIN [Concomitant]
     Active Substance: VITAMINS
  2. ORTHO MICRONOR [Concomitant]
     Active Substance: NORETHINDRONE
  3. ERGOCALCIFEROL (VIT D2) 50,000 UNITS [Suspect]
     Active Substance: ERGOCALCIFEROL
     Indication: VITAMIN D DEFICIENCY
     Dosage: ?          QUANTITY:1 CAPSULE(S);OTHER FREQUENCY:ONCE A WEEK;?
     Route: 048
     Dates: start: 20170925

REACTIONS (4)
  - Heart rate irregular [None]
  - Nausea [None]
  - Dizziness [None]
  - Vomiting [None]

NARRATIVE: CASE EVENT DATE: 20170925
